FAERS Safety Report 8836881 (Version 4)
Quarter: 2013Q2

REPORT INFORMATION
  Report Type: Spontaneous
  Country: US (occurrence: US)
  Receive Date: 20121012
  Receipt Date: 20130510
  Transmission Date: 20140414
  Serious: Yes (Hospitalization)
  Sender: FDA-Public Use
  Company Number: US-US-EMD SERONO, INC.-7166120

PATIENT
  Age: 65 Year
  Sex: Female

DRUGS (3)
  1. REBIF [Suspect]
     Indication: PRODUCT USED FOR UNKNOWN INDICATION
     Route: 058
     Dates: start: 20081117, end: 20121001
  2. REBIF [Suspect]
     Route: 058
     Dates: start: 20121005, end: 201212
  3. GILENYA [Suspect]
     Indication: PRODUCT USED FOR UNKNOWN INDICATION
     Dates: start: 20121002

REACTIONS (4)
  - Cardiomyopathy [Recovering/Resolving]
  - Atrioventricular block [Unknown]
  - Hypertension [Recovering/Resolving]
  - Injection site reaction [Not Recovered/Not Resolved]
